FAERS Safety Report 4677717-7 (Version None)
Quarter: 2005Q2

REPORT INFORMATION
  Report Type: 
  Country: None (occurrence: None)
  Receive Date: 20050527
  Receipt Date: 20050527
  Transmission Date: 20051028
  Serious: Yes (Death)
  Sender: FDA-Public Use
  Company Number: None

PATIENT
  Age: 2 Month
  Sex: Male
  Weight: 3.3 kg

DRUGS (4)
  1. CYTARABINE [Suspect]
     Indication: MYELOID LEUKAEMIA
     Dosage: 9.9 MG Q 12H IV X 3 DAYS
     Route: 042
  2. DAUNOMYCIN [Suspect]
     Indication: MYELOID LEUKAEMIA
     Dosage: 5.8 MG IV Q 2 DAYS X 1
     Route: 042
  3. ETOPOSIDE [Suspect]
     Indication: MYELOID LEUKAEMIA
     Dosage: 11.5 MG DAILY
     Dates: start: 20050518, end: 20050521
  4. ANTIBIOTICS [Concomitant]

REACTIONS (7)
  - ABDOMINAL DISTENSION [None]
  - ACIDOSIS [None]
  - COAGULOPATHY [None]
  - GASTROINTESTINAL DISORDER [None]
  - HAEMATOMA [None]
  - INTRA-ABDOMINAL HAEMORRHAGE [None]
  - POST PROCEDURAL HAEMORRHAGE [None]
